FAERS Safety Report 23925704 (Version 1)
Quarter: 2024Q2

REPORT INFORMATION
  Report Type: Spontaneous
  Country: US (occurrence: US)
  Receive Date: 20240531
  Receipt Date: 20240531
  Transmission Date: 20240716
  Serious: No
  Sender: FDA-Public Use
  Company Number: US-RADIUS HEALTH INC.-2023US002218

PATIENT
  Age: 65 Year
  Sex: Female
  Weight: 52.154 kg

DRUGS (2)
  1. TYMLOS [Suspect]
     Active Substance: ABALOPARATIDE
     Indication: Product used for unknown indication
     Dosage: 80 MCG, DAILY
     Route: 058
  2. LINZESS [Concomitant]
     Active Substance: LINACLOTIDE
     Indication: Product used for unknown indication

REACTIONS (2)
  - Pollakiuria [Unknown]
  - Thirst [Unknown]

NARRATIVE: CASE EVENT DATE: 20230301
